FAERS Safety Report 4473335-4 (Version None)
Quarter: 2004Q4

REPORT INFORMATION
  Report Type: 
  Country: None (occurrence: None)
  Receive Date: 20041008
  Receipt Date: 20040927
  Transmission Date: 20050328
  Serious: Yes (Disabling)
  Sender: FDA-Public Use
  Company Number: BR-2004-032878

PATIENT
  Age: 28 Year
  Sex: Female

DRUGS (3)
  1. YASMIN [Suspect]
     Indication: ALOPECIA
     Dosage: 1 TAB(S), UNK, ORAL
     Route: 048
     Dates: start: 20040701, end: 20040924
  2. YASMIN [Suspect]
     Indication: SEBORRHOEA
     Dosage: 1 TAB(S), UNK, ORAL
     Route: 048
     Dates: start: 20040701, end: 20040924
  3. ATENOLOL [Concomitant]

REACTIONS (3)
  - ASTIGMATISM [None]
  - MYOPIA [None]
  - VISUAL ACUITY REDUCED [None]
